FAERS Safety Report 25755928 (Version 2)
Quarter: 2025Q4

REPORT INFORMATION
  Report Type: Report from Study
  Country: CN (occurrence: CN)
  Receive Date: 20250903
  Receipt Date: 20251007
  Transmission Date: 20260118
  Serious: Yes (Other)
  Sender: ROCHE
  Company Number: CN-ROCHE-10000354747

PATIENT
  Age: 36 Year
  Sex: Female
  Weight: 57 kg

DRUGS (50)
  1. POLATUZUMAB VEDOTIN [Suspect]
     Active Substance: POLATUZUMAB VEDOTIN
     Indication: Diffuse large B-cell lymphoma
     Route: 042
     Dates: start: 20240606, end: 20240606
  2. POLATUZUMAB VEDOTIN [Suspect]
     Active Substance: POLATUZUMAB VEDOTIN
     Route: 042
     Dates: start: 20240727, end: 20240727
  3. CYCLOPHOSPHAMIDE [Suspect]
     Active Substance: CYCLOPHOSPHAMIDE
     Indication: Diffuse large B-cell lymphoma
     Route: 042
     Dates: start: 20240607, end: 20240607
  4. DOXORUBICIN HYDROCHLORIDE [Suspect]
     Active Substance: DOXORUBICIN HYDROCHLORIDE
     Indication: Diffuse large B-cell lymphoma
     Route: 042
     Dates: start: 20240607, end: 20240607
  5. PREDNISONE [Suspect]
     Active Substance: PREDNISONE
     Indication: Diffuse large B-cell lymphoma
     Route: 048
     Dates: start: 20240607, end: 20240607
  6. METHOTREXATE [Suspect]
     Active Substance: METHOTREXATE
     Indication: Diffuse large B-cell lymphoma
     Route: 042
     Dates: start: 20240728, end: 20240728
  7. DOXORUBICIN HYDROCHLORIDE [Suspect]
     Active Substance: DOXORUBICIN HYDROCHLORIDE
     Indication: Diffuse large B-cell lymphoma
     Route: 042
     Dates: start: 20240607, end: 20240607
  8. SODIUM BICARBONATE [Concomitant]
     Active Substance: SODIUM BICARBONATE
  9. ONDANSETRON HYDROCHLORIDE [Concomitant]
     Active Substance: ONDANSETRON HYDROCHLORIDE
  10. Allopurinol sustained release capsules [Concomitant]
  11. Magnesium isoglycyrrhizinate injection [Concomitant]
  12. FUROSEMIDE [Concomitant]
     Active Substance: FUROSEMIDE
  13. LEUCOVORIN CALCIUM [Concomitant]
     Active Substance: LEUCOVORIN CALCIUM
  14. Heparin sodium sealed tube injection [Concomitant]
  15. METRONIDAZOLE [Concomitant]
     Active Substance: METRONIDAZOLE
  16. Berberine hydrochloride tablets [Concomitant]
  17. Vitamin B1 Tablets [Concomitant]
  18. ACYCLOVIR SODIUM [Concomitant]
     Active Substance: ACYCLOVIR SODIUM
  19. Erythromycin eye cream [Concomitant]
  20. Tobramycin dexamethasone eye drops [Concomitant]
     Dosage: DRUG DOSE FIRST ADMINISTERED IS 1 OTHER
     Dates: start: 20240910, end: 20240915
  21. POSACONAZOLE [Concomitant]
     Active Substance: POSACONAZOLE
  22. LEVOFLOXACIN [Concomitant]
     Active Substance: LEVOFLOXACIN
  23. CEFTRIAXONE SODIUM [Concomitant]
     Active Substance: CEFTRIAXONE SODIUM
  24. POTASSIUM CHLORIDE [Concomitant]
     Active Substance: POTASSIUM CHLORIDE
  25. ASCORBIC ACID [Concomitant]
     Active Substance: ASCORBIC ACID
  26. CALCIUM GLUCONATE [Concomitant]
     Active Substance: CALCIUM GLUCONATE
  27. FAMOTIDINE [Concomitant]
     Active Substance: FAMOTIDINE
  28. Entecavir capsules [Concomitant]
  29. Palonosetron hydrochloride inj [Concomitant]
  30. DEXAMETHASONE SODIUM PHOSPHATE [Concomitant]
     Active Substance: DEXAMETHASONE SODIUM PHOSPHATE
  31. APREPITANT [Concomitant]
     Active Substance: APREPITANT
  32. OLANZAPINE [Concomitant]
     Active Substance: OLANZAPINE
  33. CYTARABINE [Concomitant]
     Active Substance: CYTARABINE
  34. Pantoprazole sodium injection [Concomitant]
  35. Carbazochrome Sodium Sulfonate For Injection [Concomitant]
  36. New pharynx [Concomitant]
  37. CILASTATIN SODIUM\IMIPENEM [Concomitant]
     Active Substance: CILASTATIN SODIUM\IMIPENEM
  38. Montmorillonite powder [Concomitant]
  39. Recombinant human thrombopoietin injection [Concomitant]
  40. Vancomycin hydrochloride for inj [Concomitant]
  41. Micafungin sodium for injection [Concomitant]
  42. CEFOPERAZONE SODIUM\SULBACTAM SODIUM [Concomitant]
     Active Substance: CEFOPERAZONE SODIUM\SULBACTAM SODIUM
  43. POTASSIUM CITRATE [Concomitant]
     Active Substance: POTASSIUM CITRATE
  44. TUCIDINOSTAT [Concomitant]
     Active Substance: TUCIDINOSTAT
  45. Torasemil injection [Concomitant]
  46. PROMETHAZINE [Concomitant]
     Active Substance: PROMETHAZINE HYDROCHLORIDE
  47. Protamine sulfate injection [Concomitant]
  48. Pegylated recombinant human granulocytic stimulating factor inj [Concomitant]
  49. METOCLOPRAMIDE HYDROCHLORIDE [Concomitant]
     Active Substance: METOCLOPRAMIDE HYDROCHLORIDE
  50. Neomycin Sulfate Spray [Concomitant]

REACTIONS (2)
  - Thrombocytopenia [Recovered/Resolved]
  - White blood cell count decreased [Recovered/Resolved]

NARRATIVE: CASE EVENT DATE: 20240912
